FAERS Safety Report 6551147-5 (Version None)
Quarter: 2010Q1

REPORT INFORMATION
  Report Type: 
  Country: None (occurrence: None)
  Receive Date: 20100121
  Receipt Date: 20100108
  Transmission Date: 20100710
  Serious: Yes (Other)
  Sender: FDA-Public Use
  Company Number: GB-1180370

PATIENT
  Age: 81 Year
  Sex: Female

DRUGS (16)
  1. BSS (BSS) OPHTHALMIC SOLUTION FOR IRRIGATION SOLUTION [Suspect]
     Indication: CATARACT OPERATION
     Dosage: OPHTHALMIC
     Route: 047
     Dates: start: 20070502, end: 20070502
  2. EPINEPHRINE [Suspect]
     Indication: CATARACT OPERATION
     Dosage: 0.3 ML  INTRAOCULAR
     Route: 031
     Dates: start: 20070502, end: 20070502
  3. EPINEPHRINE [Suspect]
     Indication: EYE IRRIGATION
     Dosage: 0.3 ML  INTRAOCULAR
     Route: 031
     Dates: start: 20070502, end: 20070502
  4. BETAMETHASONE [Suspect]
     Indication: EYE OPERATION
     Dosage: OPHTHALMIC
     Route: 048
     Dates: start: 20070502, end: 20070502
  5. CYCLOPENTOLATE (CYCLOPENTOLATE HYDROCHLORIDE) 1 % [Suspect]
     Indication: CATARACT OPERATION
     Dosage: INTRAOCULAR
     Route: 031
     Dates: start: 20070502, end: 20070502
  6. FLURBIPROFEN SODIUM [Suspect]
     Indication: PREOPERATIVE CARE
     Dosage: INTRAOCULAR
     Route: 031
     Dates: start: 20070502, end: 20070502
  7. HYALURONATE SODIUM (HYALURONATE SODIUM) [Suspect]
     Indication: CATARACT OPERATION
     Dosage: OPHTHALMIC
     Route: 047
     Dates: start: 20070502, end: 20070502
  8. LIDOCAINE 1% [Suspect]
     Indication: ANAESTHESIA
     Dosage: 2 ML
     Route: 047
     Dates: start: 20070502, end: 20070502
  9. NEOMYCIN [Suspect]
     Indication: EYE OPERATION
     Dosage: OPHTHALMIC
     Route: 047
     Dates: start: 20070502, end: 20070502
  10. OCUFEN [Suspect]
     Indication: PREOPERATIVE CARE
     Dosage: 1DF OPHTHALMIC
     Route: 047
     Dates: start: 20070502, end: 20070502
  11. OCUFEN [Suspect]
  12. OCUFEN [Suspect]
  13. PHENYLEPHRINE (PHENYLEPHRINE) 2.5 % OPHTHALMIC SOLUTION [Suspect]
     Indication: CATARACT OPERATION
     Dosage: 1 DF OPHTHALMIC
     Route: 047
     Dates: start: 20070502, end: 20070502
  14. POVIDONE IODINE [Suspect]
     Indication: CATARACT OPERATION
     Dosage: 1 DF INTRAOCULAR
     Route: 031
     Dates: start: 20070502, end: 20070502
  15. VANCOMYCIN [Suspect]
     Indication: CATARACT OPERATION
     Dosage: 10 MG
  16. VANCOMYCIN [Suspect]
     Indication: EYE IRRIGATION
     Dosage: 10 MG

REACTIONS (1)
  - TOXIC ANTERIOR SEGMENT SYNDROME [None]
